FAERS Safety Report 22311985 (Version 1)
Quarter: 2023Q2

REPORT INFORMATION
  Report Type: Report from Study
  Country: CA (occurrence: CA)
  Receive Date: 20230512
  Receipt Date: 20230512
  Transmission Date: 20230722
  Serious: Yes (Hospitalization, Other)
  Sender: FDA-Public Use
  Company Number: CA-ABBVIE-4763970

PATIENT
  Age: 86 Year
  Sex: Female

DRUGS (12)
  1. VENCLEXTA [Suspect]
     Active Substance: VENETOCLAX
     Indication: Acute myeloid leukaemia
     Dosage: DAILY 14 DAYS OFF; ?2023 WAS THE LAST ADMIN DATE
     Route: 048
     Dates: start: 20230124
  2. VENCLEXTA [Suspect]
     Active Substance: VENETOCLAX
     Indication: Acute myeloid leukaemia
     Dosage: DAILY 14 DAYS ON, THE EVENT ONSET DATE OF LOW PLATELETS AND PULMONARY EMBOLISM WERE 2023
     Route: 048
     Dates: start: 20230501
  3. LEVOTHYROXINE [Concomitant]
     Active Substance: LEVOTHYROXINE
     Indication: Product used for unknown indication
  4. PMS-METOPROLOL [Concomitant]
     Indication: Product used for unknown indication
  5. MAR ALLOPURINOL [Concomitant]
     Indication: Product used for unknown indication
  6. APO FLUCONAZOLE [Concomitant]
     Indication: Product used for unknown indication
  7. CANDESARTAN CILEXETIL [Concomitant]
     Active Substance: CANDESARTAN CILEXETIL
     Indication: Product used for unknown indication
  8. PMS VALACYCLOVIR [Concomitant]
     Indication: Product used for unknown indication
  9. ODAN K [Concomitant]
     Indication: Product used for unknown indication
     Dosage: 20 MEQ
  10. AZACITIDINE [Concomitant]
     Active Substance: AZACITIDINE
     Indication: Product used for unknown indication
  11. AURO SERTRALINE [Concomitant]
     Indication: Product used for unknown indication
  12. SULFATRIM [Concomitant]
     Active Substance: SULFAMETHOXAZOLE\TRIMETHOPRIM
     Indication: Product used for unknown indication
     Dosage: 400 MG-80 MG

REACTIONS (3)
  - Pulmonary embolism [Unknown]
  - Platelet count decreased [Unknown]
  - Neutrophil count decreased [Unknown]

NARRATIVE: CASE EVENT DATE: 20230508
